FAERS Safety Report 22263703 (Version 1)
Quarter: 2023Q2

REPORT INFORMATION
  Report Type: Spontaneous
  Country: US (occurrence: US)
  Receive Date: 20230428
  Receipt Date: 20230428
  Transmission Date: 20230722
  Serious: No
  Sender: FDA-Public Use
  Company Number: US-TARO PHARMACEUTICALS USA INC.-2022TAR01441

PATIENT

DRUGS (2)
  1. FLUOROURACIL [Suspect]
     Active Substance: FLUOROURACIL
     Indication: Skin cancer
     Dosage: UNK, BID, TO COVER FACE
     Route: 061
     Dates: start: 20221029, end: 20221122
  2. FLUOROURACIL [Suspect]
     Active Substance: FLUOROURACIL
     Indication: Prophylaxis

REACTIONS (2)
  - Wound [Not Recovered/Not Resolved]
  - Scrotal ulcer [Not Recovered/Not Resolved]

NARRATIVE: CASE EVENT DATE: 20221124
